FAERS Safety Report 5052073-3 (Version None)
Quarter: 2006Q3

REPORT INFORMATION
  Report Type: 
  Country: None (occurrence: None)
  Receive Date: 20060711
  Receipt Date: 20060630
  Transmission Date: 20061208
  Serious: Yes (Hospitalization)
  Sender: FDA-Public Use
  Company Number: A-CH2006-12542

PATIENT
  Age: 77 Year
  Sex: Male

DRUGS (3)
  1. TRACLEER [Suspect]
     Indication: PULMONARY HYPERTENSION
     Dosage: 125 MG BID ORAL
     Route: 048
     Dates: start: 20060401, end: 20060628
  2. ACETYLSALICYLIC ACID SRT [Concomitant]
  3. DIURETICS [Concomitant]

REACTIONS (1)
  - ANAEMIA [None]
